FAERS Safety Report 17840610 (Version 2)
Quarter: 2020Q3

REPORT INFORMATION
  Report Type: Spontaneous
  Country: US (occurrence: US)
  Receive Date: 20200529
  Receipt Date: 20200806
  Transmission Date: 20201103
  Serious: Yes (Hospitalization, Other)
  Sender: FDA-Public Use
  Company Number: US-PFIZER INC-2020211129

PATIENT
  Age: 48 Year
  Sex: Female

DRUGS (1)
  1. XELJANZ XR [Suspect]
     Active Substance: TOFACITINIB CITRATE
     Indication: RHEUMATOID ARTHRITIS
     Dosage: 11 MG, DAILY
     Route: 048
     Dates: start: 2020, end: 202007

REACTIONS (8)
  - Pain [Unknown]
  - Exposure to communicable disease [Unknown]
  - COVID-19 [Unknown]
  - Depression [Unknown]
  - Arthralgia [Unknown]
  - Gait disturbance [Unknown]
  - Pneumonia [Unknown]
  - Drug ineffective [Unknown]
